FAERS Safety Report 8108853-0 (Version None)
Quarter: 2012Q1

REPORT INFORMATION
  Report Type: 
  Country: None (occurrence: None)
  Receive Date: 20120202
  Receipt Date: 20120130
  Transmission Date: 20120608
  Serious: Yes (Hospitalization)
  Sender: FDA-Public Use
  Company Number: US-GLAXOSMITHKLINE-A0770011A

PATIENT
  Age: 65 Year
  Sex: Male

DRUGS (12)
  1. ASPIRIN [Concomitant]
  2. VITAMIN D [Concomitant]
  3. TERBINAFINE HCL [Concomitant]
  4. ZINC SULFATE [Concomitant]
  5. WELCHOL [Concomitant]
  6. CRESTOR [Concomitant]
  7. AMLODIPINE BESYLATE [Concomitant]
  8. LOVAZA [Suspect]
     Indication: BLOOD CHOLESTEROL INCREASED
     Dosage: 1G TWICE PER DAY
     Route: 048
     Dates: start: 20060101
  9. AVODART [Suspect]
     Indication: BENIGN PROSTATIC HYPERPLASIA
     Dosage: .5MG VARIABLE DOSE
     Route: 048
     Dates: start: 20080301
  10. ALTACE [Concomitant]
  11. NIASPAN [Concomitant]
  12. ASPIRIN [Concomitant]

REACTIONS (9)
  - MUSCLE STRAIN [None]
  - ABDOMINAL DISCOMFORT [None]
  - THROMBOSIS [None]
  - BLADDER CATHETERISATION [None]
  - DYSPHONIA [None]
  - URINARY TRACT OBSTRUCTION [None]
  - PROSTATIC HAEMORRHAGE [None]
  - THYROID FUNCTION TEST ABNORMAL [None]
  - LOW DENSITY LIPOPROTEIN INCREASED [None]
